FAERS Safety Report 8412464-7 (Version None)
Quarter: 2012Q2

REPORT INFORMATION
  Report Type: 
  Country: None (occurrence: None)
  Receive Date: 20120605
  Receipt Date: 20120518
  Transmission Date: 20120825
  Serious: No
  Sender: FDA-Public Use
  Company Number: US-AMGEN-USASP2012014718

PATIENT
  Age: 47 Year
  Sex: Female
  Weight: 63.492 kg

DRUGS (1)
  1. ENBREL [Suspect]
     Indication: PSORIASIS
     Dosage: 50 MG, QWK
     Route: 058
     Dates: start: 20120125

REACTIONS (7)
  - SINUSITIS [None]
  - COUGH [None]
  - INFLUENZA [None]
  - ARTHRALGIA [None]
  - LACRIMATION INCREASED [None]
  - EYE PRURITUS [None]
  - BACK PAIN [None]
